FAERS Safety Report 8102967-7 (Version None)
Quarter: 2012Q1

REPORT INFORMATION
  Report Type: 
  Country: None (occurrence: None)
  Receive Date: 20120201
  Receipt Date: 20111212
  Transmission Date: 20120608
  Serious: Yes (Other)
  Sender: FDA-Public Use
  Company Number: US-ASTELLAS-2012US001136

PATIENT
  Sex: Female
  Weight: 14 kg

DRUGS (5)
  1. LAC-HYDRIN [Concomitant]
     Indication: ICHTHYOSIS
     Dosage: 12 %, UID/QD
     Route: 061
     Dates: start: 20110217
  2. CUTIVATE [Concomitant]
     Indication: ECZEMA
     Dosage: 0.05 %, UID/QD
     Route: 061
     Dates: start: 20110217
  3. TACROLIMUS [Suspect]
     Indication: DERMATITIS ATOPIC
     Dosage: 0.03 %, UNKNOWN/D
     Route: 061
     Dates: start: 20110502
  4. LAC-HYDRIN [Concomitant]
     Indication: ECZEMA
  5. POLYTRIM [Concomitant]
     Indication: PRODUCT USED FOR UNKNOWN INDICATION
     Dosage: UNK
     Route: 047
     Dates: start: 20110217

REACTIONS (2)
  - STAPHYLOCOCCAL INFECTION [None]
  - IMPETIGO [None]
